FAERS Safety Report 13848505 (Version 3)
Quarter: 2017Q4

REPORT INFORMATION
  Report Type: Spontaneous
  Country: JP (occurrence: JP)
  Receive Date: 20170809
  Receipt Date: 20171114
  Transmission Date: 20180320
  Serious: Yes (Death, Other)
  Sender: FDA-Public Use
  Company Number: JP-009507513-1708JPN000897J

PATIENT
  Age: 63 Year
  Sex: Male
  Weight: 64 kg

DRUGS (7)
  1. PRIMPERAN [Concomitant]
     Active Substance: METOCLOPRAMIDE HYDROCHLORIDE
     Indication: LUNG ADENOCARCINOMA
     Dosage: 5 MG, QD
     Route: 048
     Dates: start: 20170330
  2. HUMAN SERUM ALBUMIN [Concomitant]
     Active Substance: ALBUMIN HUMAN
     Indication: LUNG ADENOCARCINOMA
     Dosage: 25 G, QD
     Route: 051
     Dates: start: 20170405, end: 20170406
  3. TARCEVA [Concomitant]
     Active Substance: ERLOTINIB HYDROCHLORIDE
     Indication: LUNG ADENOCARCINOMA
     Dosage: 100 MG, QD
     Route: 048
     Dates: start: 20170411, end: 20170411
  4. KEYTRUDA [Suspect]
     Active Substance: PEMBROLIZUMAB
     Indication: LUNG ADENOCARCINOMA
     Dosage: 200 MG, Q3W
     Route: 041
     Dates: start: 20170323, end: 20170323
  5. DECADRON [Concomitant]
     Active Substance: DEXAMETHASONE
     Indication: LUNG ADENOCARCINOMA
     Dosage: 4 MG, QD
     Route: 048
     Dates: end: 20170413
  6. PRIMPERAN [Concomitant]
     Active Substance: METOCLOPRAMIDE HYDROCHLORIDE
     Indication: LUNG ADENOCARCINOMA
     Dosage: 10 MG, QD
     Route: 051
     Dates: start: 20170330
  7. LASIX [Concomitant]
     Active Substance: FUROSEMIDE
     Indication: LUNG ADENOCARCINOMA
     Dosage: 20 MG, QD
     Route: 051
     Dates: start: 20170405, end: 20170406

REACTIONS (2)
  - Malignant neoplasm progression [Fatal]
  - Pyrexia [Recovered/Resolved]

NARRATIVE: CASE EVENT DATE: 20170324
